FAERS Safety Report 11507032 (Version 1)
Quarter: 2015Q3

REPORT INFORMATION
  Report Type: Spontaneous
  Country: US (occurrence: US)
  Receive Date: 20150915
  Receipt Date: 20150915
  Transmission Date: 20151125
  Serious: No
  Sender: FDA-Public Use
  Company Number: US-BIOGENIDEC-2015BI125391

PATIENT
  Sex: Female

DRUGS (3)
  1. AVONEX [Suspect]
     Active Substance: INTERFERON BETA-1A
     Indication: PRODUCT USED FOR UNKNOWN INDICATION
  2. AMPYRA [Concomitant]
     Active Substance: DALFAMPRIDINE
     Route: 048
  3. KEFLEX [Concomitant]
     Active Substance: CEPHALEXIN

REACTIONS (4)
  - Injection site pain [Not Recovered/Not Resolved]
  - Haematoma [Unknown]
  - Injection site erythema [Not Recovered/Not Resolved]
  - Skin reaction [Unknown]
